FAERS Safety Report 5876910-5 (Version None)
Quarter: 2008Q3

REPORT INFORMATION
  Report Type: 
  Country: None (occurrence: None)
  Receive Date: 20080910
  Receipt Date: 20080904
  Transmission Date: 20090109
  Serious: Yes (Other)
  Sender: FDA-Public Use
  Company Number: CH-ABBOTT-08P-151-0474323-00

PATIENT
  Age: 31 Year
  Sex: Male

DRUGS (2)
  1. KLACID [Suspect]
     Indication: LOBAR PNEUMONIA
     Route: 042
     Dates: start: 20080808, end: 20080808
  2. PIPERACILLIN SODIUM AND TAZOBACTAM SODIUM [Suspect]
     Indication: LOBAR PNEUMONIA
     Route: 042
     Dates: start: 20080808, end: 20080808

REACTIONS (3)
  - DERMATITIS EXFOLIATIVE [None]
  - DYSPNOEA [None]
  - TACHYCARDIA [None]
